FAERS Safety Report 16884725 (Version 1)
Quarter: 2019Q4

REPORT INFORMATION
  Report Type: Spontaneous
  Country: US (occurrence: US)
  Receive Date: 20191004
  Receipt Date: 20191004
  Transmission Date: 20200122
  Serious: Yes (Death, Hospitalization)
  Sender: FDA-Public Use
  Company Number: US-KYOWAKIRIN-2019BKK007548

PATIENT

DRUGS (2)
  1. SANCUSO [Suspect]
     Active Substance: GRANISETRON
     Indication: PRODUCT USED FOR UNKNOWN INDICATION
     Dosage: UNKNOWN
     Route: 061
     Dates: start: 20190403
  2. SANCUSO [Suspect]
     Active Substance: GRANISETRON
     Dosage: UNKNOWN
     Route: 061
     Dates: start: 2019

REACTIONS (2)
  - Death [Fatal]
  - Hospitalisation [Unknown]

NARRATIVE: CASE EVENT DATE: 20190503
